FAERS Safety Report 9563758 (Version 1)
Quarter: 2013Q3

REPORT INFORMATION
  Report Type: Spontaneous
  Country: US (occurrence: None)
  Receive Date: 20130926
  Receipt Date: 20130926
  Transmission Date: 20140515
  Serious: Yes (Hospitalization)
  Sender: FDA-Public Use
  Company Number: 2013SA092719

PATIENT
  Age: 55 Year
  Sex: Male

DRUGS (1)
  1. ASPERCREME / UNKNOWN / UNKNOWN [Suspect]
     Dates: start: 20130910

REACTIONS (4)
  - Urticaria [None]
  - Urticaria [None]
  - Local swelling [None]
  - Swelling face [None]
